FAERS Safety Report 5416703-6 (Version None)
Quarter: 2007Q3

REPORT INFORMATION
  Report Type: 
  Country: None (occurrence: None)
  Receive Date: 20070816
  Receipt Date: 20070808
  Transmission Date: 20080115
  Serious: Yes (Hospitalization)
  Sender: FDA-Public Use
  Company Number: A0612860B

PATIENT
  Age: 74 Year
  Sex: Female
  Weight: 52.5 kg

DRUGS (1)
  1. SALMETEROL + FLUTICASONE [Suspect]
     Indication: CHRONIC OBSTRUCTIVE PULMONARY DISEASE
     Route: 055
     Dates: start: 20060504, end: 20070401

REACTIONS (7)
  - COUGH [None]
  - DRUG INEFFECTIVE [None]
  - DYSPNOEA [None]
  - FATIGUE [None]
  - LOBAR PNEUMONIA [None]
  - PNEUMONIA STAPHYLOCOCCAL [None]
  - RENAL FAILURE ACUTE [None]
